FAERS Safety Report 5287409-1 (Version None)
Quarter: 2007Q1

REPORT INFORMATION
  Report Type: 
  Country: None (occurrence: None)
  Receive Date: 20070116
  Receipt Date: 20061002
  Transmission Date: 20070707
  Serious: No
  Sender: FDA-Public Use
  Company Number: 2006SP003479

PATIENT
  Age: 75 Year
  Sex: Female
  Weight: 59.4212 kg

DRUGS (11)
  1. LUNESTA [Suspect]
     Indication: SLEEP DISORDER
     Dosage: 3 MG; HS; ORAL
     Route: 048
     Dates: start: 20060929
  2. MICRO-K [Concomitant]
  3. AMLODIPINE [Concomitant]
  4. HYDROCHLOROTHIAZIDE [Concomitant]
  5. DESLORATADINE [Concomitant]
  6. ACIPHEX [Concomitant]
  7. CELEBREX [Concomitant]
  8. FOSAMAX [Concomitant]
  9. MAGNESIUM [Concomitant]
  10. CALCIUM [Concomitant]
  11. VITAMINS [Concomitant]

REACTIONS (1)
  - DYSGEUSIA [None]
